FAERS Safety Report 19710711 (Version 2)
Quarter: 2021Q3

REPORT INFORMATION
  Report Type: Report from Study
  Country: GB (occurrence: GB)
  Receive Date: 20210817
  Receipt Date: 20210824
  Transmission Date: 20211014
  Serious: Yes (Hospitalization, Other)
  Sender: FDA-Public Use
  Company Number: GB-BRISTOL-MYERS SQUIBB COMPANY-BMS-2021-079750

PATIENT
  Age: 37 Year
  Sex: Female
  Weight: 70.2 kg

DRUGS (4)
  1. NIVOLUMAB [Suspect]
     Active Substance: NIVOLUMAB
     Indication: OVARIAN CANCER
     Dosage: 240 MILLIGRAM
     Route: 042
     Dates: start: 20210618, end: 20210730
  2. CYCLIZINE [Concomitant]
     Active Substance: CYCLIZINE
     Indication: NAUSEA
     Dosage: 50 MILLIGRAM
     Route: 065
     Dates: start: 20210618
  3. RUCAPARIB [Suspect]
     Active Substance: RUCAPARIB
     Indication: OVARIAN CANCER
     Dosage: 400 MILLIGRAM
     Route: 048
     Dates: start: 20210618, end: 20210810
  4. IPILIMUMAB [Suspect]
     Active Substance: IPILIMUMAB
     Indication: OVARIAN CANCER
     Dosage: 65 MILLIGRAM
     Route: 042
     Dates: start: 20210618, end: 20210730

REACTIONS (2)
  - Procedural pneumothorax [Unknown]
  - Pleural effusion [Recovered/Resolved with Sequelae]

NARRATIVE: CASE EVENT DATE: 20210809
